FAERS Safety Report 24324227 (Version 1)
Quarter: 2024Q3

REPORT INFORMATION
  Report Type: Spontaneous
  Country: SE (occurrence: SE)
  Receive Date: 20240916
  Receipt Date: 20240916
  Transmission Date: 20241016
  Serious: Yes (Death, Other)
  Sender: NOVITIUM PHARMA
  Company Number: SE-NOVITIUMPHARMA-2024SENVP01826

PATIENT
  Age: 79 Year
  Sex: Male

DRUGS (1)
  1. PREDNISONE [Suspect]
     Active Substance: PREDNISONE
     Indication: Aplastic anaemia

REACTIONS (2)
  - Neutropenic infection [Fatal]
  - Drug ineffective [Fatal]
